FAERS Safety Report 4953328-0 (Version None)
Quarter: 2006Q1

REPORT INFORMATION
  Report Type: 
  Country: None (occurrence: None)
  Receive Date: 20060324
  Receipt Date: 20050829
  Transmission Date: 20060701
  Serious: Yes (Hospitalization, Disabling)
  Sender: FDA-Public Use
  Company Number: US-ROCHE-416079

PATIENT
  Age: 22 Year
  Sex: Male
  Weight: 59 kg

DRUGS (1)
  1. ACCUTANE [Suspect]
     Dosage: 1 DOSE FORM IN A.M AND TWO DOSE FORMS IN P.M.
     Route: 048
     Dates: start: 19970709

REACTIONS (21)
  - BRONCHIAL HYPERACTIVITY [None]
  - CHRONIC FATIGUE SYNDROME [None]
  - DEHYDRATION [None]
  - DIZZINESS [None]
  - DUODENITIS [None]
  - GASTROENTERITIS [None]
  - GASTROINTESTINAL DISORDER [None]
  - HEADACHE [None]
  - HEAT STROKE [None]
  - INFLAMMATORY BOWEL DISEASE [None]
  - INFLUENZA LIKE ILLNESS [None]
  - INSOMNIA [None]
  - INTESTINAL HAEMORRHAGE [None]
  - MULTI-ORGAN DISORDER [None]
  - OESOPHAGITIS [None]
  - PRURITUS [None]
  - PSEUDOPOLYP [None]
  - REFLUX GASTRITIS [None]
  - RHINITIS [None]
  - UPPER RESPIRATORY TRACT INFECTION [None]
  - WEIGHT DECREASED [None]
